FAERS Safety Report 10601378 (Version 4)
Quarter: 2015Q2

REPORT INFORMATION
  Report Type: Spontaneous
  Country: US (occurrence: US)
  Receive Date: 20141124
  Receipt Date: 20150515
  Transmission Date: 20150821
  Serious: Yes (Disabling)
  Sender: FDA-Public Use
  Company Number: US-009507513-1110USA03617

PATIENT
  Sex: Male
  Weight: 124.72 kg

DRUGS (1)
  1. PROPECIA [Suspect]
     Active Substance: FINASTERIDE
     Indication: ALOPECIA
     Dosage: 1 MG, UNK
     Route: 048
     Dates: start: 2003, end: 2009

REACTIONS (21)
  - Generalised anxiety disorder [Not Recovered/Not Resolved]
  - Lumbar spinal stenosis [Unknown]
  - Back pain [Unknown]
  - Erectile dysfunction [Unknown]
  - Drug ineffective [Unknown]
  - Blood creatinine increased [Unknown]
  - Insomnia [Not Recovered/Not Resolved]
  - Urinary tract obstruction [Not Recovered/Not Resolved]
  - Intervertebral disc degeneration [Unknown]
  - Depression [Not Recovered/Not Resolved]
  - Sexual dysfunction [Unknown]
  - Ejaculation failure [Unknown]
  - Ejaculation disorder [Unknown]
  - Drug ineffective [Unknown]
  - Libido decreased [Unknown]
  - Benign prostatic hyperplasia [Not Recovered/Not Resolved]
  - Urge incontinence [Not Recovered/Not Resolved]
  - Fibromyalgia [Not Recovered/Not Resolved]
  - Hypertonic bladder [Not Recovered/Not Resolved]
  - Essential hypertension [Unknown]
  - Syphilis [Unknown]

NARRATIVE: CASE EVENT DATE: 2004
